FAERS Safety Report 25823923 (Version 1)
Quarter: 2025Q3

REPORT INFORMATION
  Report Type: Spontaneous
  Country: US (occurrence: None)
  Receive Date: 20250918
  Receipt Date: 20250918
  Transmission Date: 20251021
  Serious: No
  Sender: FDA-CTU
  Company Number: None

PATIENT
  Age: 27 Year
  Sex: Female
  Weight: 72 kg

DRUGS (1)
  1. LA ROCHE POSAY LABORATOIRE DERMATOLOGIQUE EFFACLAR DUO ACNE TREATMENT [Suspect]
     Active Substance: BENZOYL PEROXIDE
     Indication: Acne cystic
     Dosage: FREQUENCY : DAILY;?
     Route: 061
     Dates: start: 20250118, end: 20250206

REACTIONS (3)
  - Hypersensitivity [None]
  - Scar [None]
  - Skin disorder [None]
